FAERS Safety Report 5269643-X (Version None)
Quarter: 2007Q1

REPORT INFORMATION
  Report Type: 
  Country: None (occurrence: None)
  Receive Date: 20070320
  Receipt Date: 20061110
  Transmission Date: 20070707
  Serious: Yes (Hospitalization)
  Sender: FDA-Public Use
  Company Number: FR-ROCHE-447452

PATIENT
  Age: 43 Year
  Sex: Male

DRUGS (16)
  1. ZENAPAX [Suspect]
     Route: 042
     Dates: start: 20060116, end: 20060116
  2. ZENAPAX [Suspect]
     Route: 042
     Dates: start: 20060121, end: 20060121
  3. MYCOPHENOLATE MOFETIL [Suspect]
     Route: 048
     Dates: start: 20060116, end: 20060116
  4. MYCOPHENOLATE MOFETIL [Suspect]
     Route: 048
     Dates: start: 20060117
  5. TACROLIMUS [Suspect]
     Dosage: DOSE ADJUSTED TO REACH PREDEFINED TARGET LEVEL
     Route: 048
     Dates: start: 20060122
  6. METHYLPREDNISOLONE 16MG TAB [Suspect]
     Dosage: TAPERED ACCORDING TO LOCAL PROTOCOL
     Route: 065
     Dates: start: 20060116, end: 20060223
  7. PREDNISONE [Suspect]
     Dosage: TAPERED ACCORDING TO LOCAL PROTOCOL
     Route: 065
     Dates: start: 20060224
  8. GANCICLOVIR [Concomitant]
     Dates: start: 20060116, end: 20060226
  9. OMEPRAZOLE [Concomitant]
     Dates: start: 20060116, end: 20060208
  10. AMFOTERICINE B [Concomitant]
     Indication: PROPHYLAXIS
     Dosage: THERAPY STOPPED BETWEEN 20 FEBRUARY 2006 AND 25 FEB 2006
     Dates: start: 20060116, end: 20060420
  11. COLISTINE [Concomitant]
     Indication: PROPHYLAXIS
     Dates: start: 20060116, end: 20060220
  12. TAZOCILLINE [Concomitant]
     Indication: ANTIBIOTIC PROPHYLAXIS
     Dosage: THERAPY STOPPED BETWEEN 18 JAN 2006 AND 21 JAN 2006
     Dates: start: 20060116, end: 20060124
  13. PHOCYTAN [Concomitant]
     Dates: start: 20060117, end: 20060123
  14. OXAZEPAM [Concomitant]
     Indication: ANXIETY
     Dates: start: 20060118
  15. CLOMIPRAMINE HCL [Concomitant]
     Indication: ANXIETY
     Dates: start: 20060119, end: 20060128
  16. CEFOTAXIME [Concomitant]
     Dates: start: 20060124, end: 20060127

REACTIONS (2)
  - ACUTE RESPIRATORY DISTRESS SYNDROME [None]
  - PNEUMOTHORAX [None]
